FAERS Safety Report 5281728-0 (Version None)
Quarter: 2007Q1

REPORT INFORMATION
  Report Type: 
  Country: None (occurrence: None)
  Receive Date: 20070330
  Receipt Date: 20070327
  Transmission Date: 20070707
  Serious: Yes (Hospitalization)
  Sender: FDA-Public Use
  Company Number: US-GLAXOSMITHKLINE-A0644854A

PATIENT
  Age: 56 Year
  Sex: Male

DRUGS (12)
  1. REQUIP [Suspect]
     Indication: DRUG USE FOR UNKNOWN INDICATION
     Dosage: 20MG THREE TIMES PER DAY
     Route: 048
  2. PROVIGIL [Concomitant]
  3. ZOCOR [Concomitant]
  4. LORA TAB [Concomitant]
  5. CELEBREX [Concomitant]
  6. TORSEMIDE [Concomitant]
  7. AVANDIA [Concomitant]
  8. TETRACYCLINE [Concomitant]
  9. FLEXERIL [Concomitant]
  10. LEXAPRO [Concomitant]
  11. VALIUM [Concomitant]
  12. ZANAFLEX [Concomitant]

REACTIONS (3)
  - AGITATION [None]
  - BIPOLAR DISORDER [None]
  - PRESCRIBED OVERDOSE [None]
